FAERS Safety Report 10651487 (Version 2)
Quarter: 2015Q1

REPORT INFORMATION
  Report Type: Spontaneous
  Country: CH (occurrence: None)
  Receive Date: 20141211
  Receipt Date: 20150129
  Transmission Date: 20150720
  Serious: Yes (Death, Other)
  Sender: FDA-Public Use
  Company Number: 20140783

PATIENT
  Age: 52 Year
  Sex: Female

DRUGS (9)
  1. NIFEREX (FERROGLYCINE SULFATE COMPLEX, IRON) [Concomitant]
  2. TIOTIL [Suspect]
     Active Substance: PROPYLTHIOURACIL
     Indication: HYPERTHYROIDISM
     Dosage: 300 MG (100 MG, 3  IN 1 D) ORAL
     Route: 048
     Dates: start: 20141008, end: 20141020
  3. VENOFER [Suspect]
     Active Substance: IRON SUCROSE
     Indication: ANAEMIA
     Dosage: 100 MG, 1 IN 1 TOTAL, (ONCE) INTRAVENOUS
     Route: 042
     Dates: start: 20141016, end: 20141016
  4. ACTAVIS (OMEPRAZOLE) [Concomitant]
  5. PROPRAVANA (PROPIOMAINE MALEATE, PROPIOMAZINE) [Concomitant]
  6. ENALAPRIL [Concomitant]
     Active Substance: ENALAPRIL
  7. DUROFERON (FERROUS SULFATE) [Concomitant]
  8. VESICARE (SOLIFENACIN SUCCINATE, SOLIFENACIN) [Concomitant]
  9. IMUREL (AZATHIOPRINE) [Concomitant]

REACTIONS (2)
  - Haematochezia [None]
  - Arrhythmia [None]
